FAERS Safety Report 8115222-6 (Version None)
Quarter: 2012Q1

REPORT INFORMATION
  Report Type: 
  Country: None (occurrence: None)
  Receive Date: 20120206
  Receipt Date: 20120127
  Transmission Date: 20120608
  Serious: Yes (Other)
  Sender: FDA-Public Use
  Company Number: US-ASTELLAS-2011US006661

PATIENT
  Sex: Male

DRUGS (16)
  1. PROGRAF [Suspect]
     Dosage: 3.5 MG, BID
     Route: 065
  2. MYCOPHENOLATE MOFETIL (CELLCEPT) [Concomitant]
     Indication: PRODUCT USED FOR UNKNOWN INDICATION
     Dosage: 1000 MG, BID
     Route: 048
  3. MYCOPHENOLATE MOFETIL (CELLCEPT) [Concomitant]
     Dosage: 500 MG, BID
     Route: 048
  4. NORVASC [Concomitant]
     Indication: PRODUCT USED FOR UNKNOWN INDICATION
     Dosage: 10 MG, UID/QD
     Route: 048
  5. NORVASC [Concomitant]
     Dosage: 5 MG, BID
     Route: 048
  6. PROGRAF [Suspect]
     Dosage: 1.5 MG PM AND 0.5 MG AM
     Route: 065
  7. SIMVASTATIN [Concomitant]
     Indication: PRODUCT USED FOR UNKNOWN INDICATION
     Dosage: 10 MG, UID/QD
     Route: 048
  8. FAMOTIDINE [Concomitant]
     Indication: PRODUCT USED FOR UNKNOWN INDICATION
     Dosage: 20 MG, UID/QD
     Route: 048
  9. ALLOPURINOL [Concomitant]
     Indication: PRODUCT USED FOR UNKNOWN INDICATION
     Dosage: 300 MG, UID/QD
     Route: 065
  10. PREDNISONE TAB [Concomitant]
     Indication: PRODUCT USED FOR UNKNOWN INDICATION
     Dosage: 50 MG, UID/QD
     Route: 065
  11. METOPROLOL SUCCINATE [Concomitant]
     Indication: PRODUCT USED FOR UNKNOWN INDICATION
     Dosage: 50 MG, UID/QD
     Route: 048
  12. ALLOPURINOL [Concomitant]
     Dosage: 150 MG, UID/QD
     Route: 048
  13. METFORMIN HCL [Concomitant]
     Indication: PRODUCT USED FOR UNKNOWN INDICATION
     Dosage: 500 MG, BID
     Route: 048
  14. PROGRAF [Suspect]
     Indication: RENAL TRANSPLANT
     Dosage: 0.5 MG, BID
     Route: 048
     Dates: start: 20030630, end: 20111001
  15. GLIMEPIRIDE [Concomitant]
     Indication: PRODUCT USED FOR UNKNOWN INDICATION
     Dosage: 1 MG, UID/QD
     Route: 048
  16. GLIMEPIRIDE [Concomitant]
     Dosage: 2 MG, UID/QD
     Route: 065

REACTIONS (16)
  - KIDNEY TRANSPLANT REJECTION [None]
  - INCISION SITE PAIN [None]
  - IMMUNOSUPPRESSANT DRUG LEVEL INCREASED [None]
  - HYPOGLYCAEMIA [None]
  - PRURITUS [None]
  - RENAL FAILURE CHRONIC [None]
  - CONSTIPATION [None]
  - GLOMERULONEPHRITIS RAPIDLY PROGRESSIVE [None]
  - ABDOMINAL PAIN [None]
  - DRUG INEFFECTIVE [None]
  - CHRONIC ALLOGRAFT NEPHROPATHY [None]
  - ATRIOVENTRICULAR BLOCK SECOND DEGREE [None]
  - MUSCLE SPASMS [None]
  - RENAL TUBULAR NECROSIS [None]
  - ESSENTIAL HYPERTENSION [None]
  - ANAEMIA [None]
